FAERS Safety Report 9340590 (Version 1)
Quarter: 2013Q2

REPORT INFORMATION
  Report Type: Spontaneous
  Country: US (occurrence: US)
  Receive Date: 20130610
  Receipt Date: 20130610
  Transmission Date: 20140414
  Serious: Yes (Hospitalization)
  Sender: FDA-Public Use
  Company Number: US-GLAXOSMITHKLINE-A0797795A

PATIENT
  Age: 49 Year
  Sex: Male
  Weight: 99.1 kg

DRUGS (6)
  1. AVANDIA [Suspect]
     Indication: DIABETES MELLITUS
     Dosage: 8MG PER DAY
     Route: 048
     Dates: start: 20001121, end: 20070601
  2. INSULIN [Concomitant]
  3. ACCUPRIL [Concomitant]
  4. AMBIEN [Concomitant]
  5. PAXIL CR [Concomitant]
  6. EFFEXOR [Concomitant]

REACTIONS (3)
  - Myocardial infarction [Recovering/Resolving]
  - Cardiac arrest [Unknown]
  - Myocardial ischaemia [Unknown]
